FAERS Safety Report 20599437 (Version 1)
Quarter: 2022Q1

REPORT INFORMATION
  Report Type: Report from Study
  Country: ES (occurrence: ES)
  Receive Date: 20220315
  Receipt Date: 20220315
  Transmission Date: 20220424
  Serious: Yes (Hospitalization)
  Sender: FDA-Public Use
  Company Number: ES-BEH-2022143097

PATIENT
  Age: 59 Year
  Sex: Female
  Weight: 62 kg

DRUGS (4)
  1. RIASTAP [Suspect]
     Active Substance: FIBRINOGEN HUMAN
     Indication: Hypofibrinogenaemia
     Dosage: 8 GRAM
     Route: 042
     Dates: start: 20211011
  2. RIASTAP [Suspect]
     Active Substance: FIBRINOGEN HUMAN
     Dosage: UNK
     Route: 042
  3. RIASTAP [Suspect]
     Active Substance: FIBRINOGEN HUMAN
     Dosage: UNK
     Route: 042
  4. TACROLIMUS [Concomitant]
     Active Substance: TACROLIMUS
     Indication: Immunosuppression
     Dosage: 5 MILLIGRAM, QD
     Route: 048
     Dates: start: 20211017, end: 20211024

REACTIONS (11)
  - Pleural effusion [Recovered/Resolved]
  - Hypoxia [Recovered/Resolved]
  - Hypervolaemia [Recovered/Resolved]
  - Neurotoxicity [Recovered/Resolved]
  - Respiratory failure [Recovered/Resolved]
  - Bronchospasm [Recovered/Resolved]
  - No adverse event [Unknown]
  - Off label use [Unknown]
  - Tremor [Recovered/Resolved]
  - Loss of consciousness [Recovered/Resolved]
  - Seizure [Recovered/Resolved]

NARRATIVE: CASE EVENT DATE: 20211011
